APPROVED DRUG PRODUCT: PREMPHASE 14/14
Active Ingredient: ESTROGENS, CONJUGATED; MEDROXYPROGESTERONE ACETATE
Strength: 0.625MG,0.625MG;N/A,5MG
Dosage Form/Route: TABLET;ORAL-28
Application: N020527 | Product #002
Applicant: WYETH PHARMACEUTICALS LLC
Approved: Nov 17, 1995 | RLD: Yes | RS: Yes | Type: RX